FAERS Safety Report 8255759-2 (Version None)
Quarter: 2012Q2

REPORT INFORMATION
  Report Type: 
  Country: None (occurrence: None)
  Receive Date: 20120403
  Receipt Date: 20120402
  Transmission Date: 20120825
  Serious: Yes (Hospitalization)
  Sender: FDA-Public Use
  Company Number: US-ROCHE-1012286

PATIENT

DRUGS (5)
  1. HERCEPTIN [Suspect]
     Dosage: OVER 30 MIN ON DAY 1, 8, 15, AND 22 STARTING ON WEEK 2
     Route: 042
  2. CARBOPLATIN [Suspect]
     Indication: BREAST CANCER METASTATIC
     Dosage: AUC 2 IV OVER 1 HOUR ON DAYS 1, 8, AND 15
     Route: 042
     Dates: start: 20050518
  3. IXABEPILONE [Suspect]
     Indication: BREAST CANCER METASTATIC
     Route: 042
     Dates: start: 20050518
  4. HERCEPTIN [Suspect]
     Dosage: OVER 90 MIN ON DAY 1 (MAINTENANCE DOSE)
     Route: 042
  5. HERCEPTIN [Suspect]
     Indication: BREAST CANCER METASTATIC
     Dosage: OVER 90 MIN ON DAY 1, WEEK 1 ONLY
     Route: 042
     Dates: start: 20050518

REACTIONS (6)
  - HYPOTENSION [None]
  - TUMOUR PAIN [None]
  - BLOOD CREATININE INCREASED [None]
  - ANAEMIA [None]
  - URINARY TRACT INFECTION [None]
  - FATIGUE [None]
